FAERS Safety Report 8587077-7 (Version None)
Quarter: 2012Q3

REPORT INFORMATION
  Report Type: 
  Country: None (occurrence: None)
  Receive Date: 20120810
  Receipt Date: 19900619
  Transmission Date: 20120928
  Serious: Yes (Hospitalization)
  Sender: FDA-Public Use
  Company Number: US-ROCHE-1098889

PATIENT
  Sex: Male

DRUGS (6)
  1. ACTIVASE [Suspect]
     Indication: ACUTE MYOCARDIAL INFARCTION
     Dosage: 128 CC
  2. ASPIRIN [Concomitant]
     Dosage: 5 GRAINS DAILY
  3. HEPARIN [Concomitant]
     Dosage: 4000 UNITS EVERY 4 HOURS
     Route: 040
  4. HEPARIN [Concomitant]
     Route: 041
  5. LOPRESSOR [Concomitant]
     Dosage: 2 DOSES
     Route: 042
  6. NITROGLYCERIN [Concomitant]
     Route: 042

REACTIONS (5)
  - BLOOD CREATINE PHOSPHOKINASE INCREASED [None]
  - BLOOD LACTATE DEHYDROGENASE INCREASED [None]
  - REPERFUSION ARRHYTHMIA [None]
  - RALES [None]
  - PAIN [None]
